FAERS Safety Report 7247453-1 (Version None)
Quarter: 2011Q1

REPORT INFORMATION
  Report Type: 
  Country: None (occurrence: None)
  Receive Date: 20110127
  Receipt Date: 20110119
  Transmission Date: 20110831
  Serious: Yes (Other)
  Sender: FDA-Public Use
  Company Number: US-SANOFI-AVENTIS-2011SA004780

PATIENT
  Age: 40 Year
  Sex: Female

DRUGS (9)
  1. APIDRA [Suspect]
     Dosage: DOSE:4 UNIT(S)
     Route: 058
     Dates: start: 20101101
  2. DEXTROSE [Concomitant]
     Route: 042
     Dates: start: 20110110, end: 20110110
  3. ELOXATIN [Suspect]
     Indication: RECTAL CANCER
     Dosage: STARTED TO RECEIVE INFUSION IN HER DOCTOR'S OFFICE AND CONTINUED INFUSION AT HOME FOR 48 HOURS
     Route: 041
     Dates: start: 20101201, end: 20101201
  4. APIDRA [Suspect]
     Dosage: DOSE:20 UNIT(S)
     Route: 058
  5. DEXAMETHASONE [Concomitant]
     Indication: PREMEDICATION
  6. DEXTROSE [Concomitant]
     Route: 042
     Dates: start: 20101201, end: 20101201
  7. ZOFRAN [Concomitant]
     Indication: PREMEDICATION
  8. ELOXATIN [Suspect]
     Route: 041
     Dates: start: 20110110, end: 20110110
  9. INSULIN-MONO N [Concomitant]

REACTIONS (6)
  - BLOOD GLUCOSE INCREASED [None]
  - TACHYCARDIA [None]
  - DYSPNOEA [None]
  - HYPOKINESIA [None]
  - KETOACIDOSIS [None]
  - DEHYDRATION [None]
